FAERS Safety Report 24695197 (Version 1)
Quarter: 2024Q4

REPORT INFORMATION
  Report Type: Spontaneous
  Country: US (occurrence: None)
  Receive Date: 20241203
  Receipt Date: 20241203
  Transmission Date: 20250115
  Serious: Yes (Disabling, Other)
  Sender: Public
  Company Number: None

PATIENT
  Sex: 0

DRUGS (1)
  1. ARAZLO [Suspect]
     Active Substance: TAZAROTENE
     Indication: Acne

REACTIONS (2)
  - Headache [None]
  - Pain [None]
